FAERS Safety Report 4583881-0 (Version None)
Quarter: 2005Q1

REPORT INFORMATION
  Report Type: 
  Country: None (occurrence: None)
  Receive Date: 20050216
  Receipt Date: 20041119
  Transmission Date: 20050727
  Serious: No
  Sender: FDA-Public Use
  Company Number: US-GLAXOSMITHKLINE-A0534631A

PATIENT
  Age: 41 Year
  Sex: Female

DRUGS (3)
  1. LOTRONEX [Suspect]
     Indication: IRRITABLE BOWEL SYNDROME
     Route: 048
  2. PREVACID [Concomitant]
  3. FLORINEF [Concomitant]

REACTIONS (1)
  - TOOTH DISCOLOURATION [None]
